FAERS Safety Report 21061324 (Version 1)
Quarter: 2022Q3

REPORT INFORMATION
  Report Type: Spontaneous
  Country: AR (occurrence: AR)
  Receive Date: 20220709
  Receipt Date: 20220709
  Transmission Date: 20221026
  Serious: Yes (Hospitalization, Other)
  Sender: FDA-Public Use
  Company Number: AR-UNITED THERAPEUTICS-UNT-2022-014752

PATIENT
  Age: 74 Year
  Sex: Female

DRUGS (11)
  1. REMODULIN [Suspect]
     Active Substance: TREPROSTINIL
     Indication: Pulmonary arterial hypertension
     Dosage: UNK, CONTINUING
     Route: 058
     Dates: start: 2021
  2. LEVOTHYROXINE [Concomitant]
     Active Substance: LEVOTHYROXINE
     Indication: Product used for unknown indication
     Dosage: 200 MCG, 2 TIMES/WK (TUESDAY AND THURSDAY)
     Route: 065
  3. LEVOTHYROXINE [Concomitant]
     Active Substance: LEVOTHYROXINE
     Dosage: 150 MCG, 4 TIMES/WK (REMAINING DAYS OF WEEK)
     Route: 065
  4. SILDENAFIL [Concomitant]
     Active Substance: SILDENAFIL
     Indication: Product used for unknown indication
     Dosage: 50 MG, QID (EVERY 6 HRS)
     Route: 065
  5. BOSENTAN [Concomitant]
     Active Substance: BOSENTAN
     Indication: Product used for unknown indication
     Dosage: 125 MG, BID (EVERY 12 HOURS)
     Route: 065
  6. OMEPRAZOLE [Concomitant]
     Active Substance: OMEPRAZOLE
     Indication: Product used for unknown indication
     Dosage: 40 MG, QD
     Route: 065
  7. CLONAZEPAM [Concomitant]
     Active Substance: CLONAZEPAM
     Indication: Product used for unknown indication
     Dosage: 1 MG, QD
     Route: 065
  8. FUROSEMIDE [Concomitant]
     Active Substance: FUROSEMIDE
     Indication: Product used for unknown indication
     Dosage: 20 MG, TID (EVERY 8 HOURS)
     Route: 065
  9. ANEMIDOX FERRUM [Concomitant]
     Indication: Product used for unknown indication
     Dosage: 1 TAB, Q12H (12 HOURS)
     Route: 048
  10. LOPERAMIDE [Concomitant]
     Active Substance: LOPERAMIDE
     Indication: Product used for unknown indication
     Dosage: 2 MG (POST-BOWEL MOVEMENT)
     Route: 065
  11. ACETAMINOPHEN [Concomitant]
     Active Substance: ACETAMINOPHEN
     Indication: Pain
     Dosage: 1 GRAM, TID (EVERY 8 HOURS)
     Route: 065

REACTIONS (3)
  - Acute kidney injury [Recovered/Resolved]
  - Diarrhoea [Unknown]
  - Hypotension [Unknown]

NARRATIVE: CASE EVENT DATE: 20210101
